FAERS Safety Report 7072381-4 (Version None)
Quarter: 2010Q4

REPORT INFORMATION
  Report Type: 
  Country: None (occurrence: None)
  Receive Date: 20101029
  Receipt Date: 20100119
  Transmission Date: 20110411
  Serious: No
  Sender: FDA-Public Use
  Company Number: A0840296A

PATIENT
  Age: 56 Year
  Sex: Male

DRUGS (5)
  1. ADVAIR DISKUS 100/50 [Suspect]
     Indication: CHRONIC OBSTRUCTIVE PULMONARY DISEASE
     Dosage: 1PUFF TWICE PER DAY
     Route: 055
     Dates: start: 20080801, end: 20080901
  2. SEREVENT [Suspect]
     Indication: CHRONIC OBSTRUCTIVE PULMONARY DISEASE
     Dosage: 1PUFF PER DAY
     Route: 055
     Dates: start: 20070101, end: 20070101
  3. VENTOLIN HFA [Concomitant]
  4. OXYGEN [Concomitant]
  5. LOPRESSOR [Concomitant]

REACTIONS (2)
  - DYSPHONIA [None]
  - HEART RATE INCREASED [None]
